FAERS Safety Report 10431369 (Version 1)
Quarter: 2014Q3

REPORT INFORMATION
  Report Type: Spontaneous
  Country: US (occurrence: US)
  Receive Date: 20140904
  Receipt Date: 20140904
  Transmission Date: 20150326
  Serious: Yes (Death, Hospitalization)
  Sender: FDA-Public Use
  Company Number: US-BAUSCH-BL-2014-004398

PATIENT
  Age: 47 Year
  Sex: Female

DRUGS (1)
  1. DILTIAZEM HYDROCHLORIDE. [Suspect]
     Active Substance: DILTIAZEM HYDROCHLORIDE
     Indication: PRODUCT USED FOR UNKNOWN INDICATION
     Route: 048

REACTIONS (10)
  - Overdose [Unknown]
  - Peripheral ischaemia [Unknown]
  - Acidosis [Fatal]
  - Pulseless electrical activity [Recovered/Resolved]
  - Atrioventricular block complete [Recovered/Resolved]
  - Bradycardia [Unknown]
  - Hypotension [Recovered/Resolved]
  - Soft tissue necrosis [Unknown]
  - Respiratory failure [Fatal]
  - Abdominal compartment syndrome [Unknown]
